FAERS Safety Report 12284940 (Version 1)
Quarter: 2016Q2

REPORT INFORMATION
  Report Type: Spontaneous
  Country: US (occurrence: US)
  Receive Date: 20160420
  Receipt Date: 20160420
  Transmission Date: 20160815
  Serious: Yes (Hospitalization)
  Sender: FDA-Public Use
  Company Number: US-BEH-2016061398

PATIENT
  Age: 86 Year
  Sex: Female
  Weight: 38 kg

DRUGS (18)
  1. MUCINEX [Concomitant]
     Active Substance: GUAIFENESIN
  2. TOBRAMYCIN. [Concomitant]
     Active Substance: TOBRAMYCIN
  3. AMBIEN [Concomitant]
     Active Substance: ZOLPIDEM TARTRATE
  4. TIZANIDINE. [Concomitant]
     Active Substance: TIZANIDINE
  5. XOLAIR [Concomitant]
     Active Substance: OMALIZUMAB
  6. PRILOSEC [Concomitant]
     Active Substance: OMEPRAZOLE MAGNESIUM
  7. DIPHENHYDRAMINE. [Concomitant]
     Active Substance: DIPHENHYDRAMINE
  8. FEXOFENADINE [Concomitant]
     Active Substance: FEXOFENADINE\FEXOFENADINE HYDROCHLORIDE
  9. LEVOTHYROXINE. [Concomitant]
     Active Substance: LEVOTHYROXINE
  10. ACARBOSE. [Concomitant]
     Active Substance: ACARBOSE
  11. EPIPEN [Concomitant]
     Active Substance: EPINEPHRINE
  12. PREMARIN [Concomitant]
     Active Substance: ESTROGENS, CONJUGATED
  13. ISOSORBIDE. [Concomitant]
     Active Substance: ISOSORBIDE
  14. HIZENTRA [Suspect]
     Active Substance: HUMAN IMMUNOGLOBULIN G
     Indication: IMMUNODEFICIENCY COMMON VARIABLE
     Route: 058
  15. LIDOCAINE. [Concomitant]
     Active Substance: LIDOCAINE
  16. FOLIC ACID. [Concomitant]
     Active Substance: FOLIC ACID
  17. ALLOPURINOL. [Concomitant]
     Active Substance: ALLOPURINOL
  18. HIZENTRA [Suspect]
     Active Substance: HUMAN IMMUNOGLOBULIN G
     Route: 058
     Dates: start: 20110218

REACTIONS (1)
  - Staphylococcal infection [Recovered/Resolved]

NARRATIVE: CASE EVENT DATE: 20160404
